FAERS Safety Report 12069349 (Version 1)
Quarter: 2016Q1

REPORT INFORMATION
  Report Type: Spontaneous
  Country: BE (occurrence: BE)
  Receive Date: 20160211
  Receipt Date: 20160211
  Transmission Date: 20160526
  Serious: Yes (Life-Threatening)
  Sender: FDA-Public Use
  Company Number: BE-SA-2016SA018357

PATIENT
  Age: 54 Year
  Sex: Female

DRUGS (2)
  1. ELOXATIN [Suspect]
     Active Substance: OXALIPLATIN
     Route: 065
     Dates: start: 20160126, end: 20160126
  2. ELOXATIN [Suspect]
     Active Substance: OXALIPLATIN
     Route: 065
     Dates: start: 20160105, end: 20160105

REACTIONS (4)
  - Infusion related reaction [Recovered/Resolved]
  - Angioedema [Recovered/Resolved]
  - Speech disorder [Recovered/Resolved]
  - Muscle spasms [Recovered/Resolved]

NARRATIVE: CASE EVENT DATE: 20160105
